FAERS Safety Report 4709585-9 (Version None)
Quarter: 2005Q3

REPORT INFORMATION
  Report Type: 
  Country: None (occurrence: None)
  Receive Date: 20050706
  Receipt Date: 20050627
  Transmission Date: 20060218
  Serious: Yes (Death)
  Sender: FDA-Public Use
  Company Number: 2005076461

PATIENT
  Sex: Male

DRUGS (1)
  1. SULPERAZONE (SULBACTAM, CEFOPERAZONE) [Suspect]
     Indication: ILL-DEFINED DISORDER
     Dosage: (6 GRAM)

REACTIONS (1)
  - HAEMORRHAGE [None]
